FAERS Safety Report 4676401-3 (Version None)
Quarter: 2005Q2

REPORT INFORMATION
  Report Type: 
  Country: None (occurrence: None)
  Receive Date: 20050527
  Receipt Date: 20050304
  Transmission Date: 20051028
  Serious: No
  Sender: FDA-Public Use
  Company Number: US-GLAXOSMITHKLINE-A0548388A

PATIENT
  Age: 36 Year

DRUGS (3)
  1. WELLBUTRIN XL [Suspect]
     Indication: DEPRESSION
     Dosage: 150MG TWICE PER DAY
     Route: 048
     Dates: start: 20050225
  2. MINOCYCLINE HCL [Concomitant]
  3. LIPITOR [Concomitant]

REACTIONS (2)
  - DIZZINESS [None]
  - NAUSEA [None]
